FAERS Safety Report 8954503 (Version 1)
Quarter: 2012Q4

REPORT INFORMATION
  Report Type: 
  Country: BR (occurrence: BR)
  Receive Date: 20121207
  Receipt Date: 20121207
  Transmission Date: 20130627
  Serious: Yes (Other)
  Sender: FDA-Public Use
  Company Number: BR-ELI_LILLY_AND_COMPANY-BR201211008044

PATIENT
  Age: 72 Year
  Sex: Male

DRUGS (6)
  1. HUMULIN NPH [Suspect]
     Indication: DIABETES MELLITUS
     Dosage: 25 IU, each morning
     Route: 058
  2. HUMULIN NPH [Suspect]
     Dosage: 10 IU, each evening
     Route: 058
  3. METFORMINA [Concomitant]
     Dosage: 850 mg, unknown
     Route: 065
  4. GLICAZIDA [Concomitant]
     Dosage: 20 mg, unknown
     Route: 065
  5. SINVASTATINA [Concomitant]
     Dosage: UNK, unknown
     Route: 065
  6. AAS [Concomitant]
     Dosage: 100 mg, unknown
     Route: 065

REACTIONS (4)
  - Visual acuity reduced [Not Recovered/Not Resolved]
  - Vasodilatation [Unknown]
  - Blood glucose increased [Unknown]
  - Underdose [Unknown]
